FAERS Safety Report 8261545-X (Version None)
Quarter: 2012Q2

REPORT INFORMATION
  Report Type: 
  Country: None (occurrence: None)
  Receive Date: 20120405
  Receipt Date: 20120327
  Transmission Date: 20120825
  Serious: Yes (Hospitalization, Other)
  Sender: FDA-Public Use
  Company Number: US-ELI_LILLY_AND_COMPANY-US201203008823

PATIENT
  Sex: Female

DRUGS (10)
  1. PLAVIX [Concomitant]
     Dosage: 75 ML, QD
  2. FORTEO [Suspect]
     Indication: OSTEOPOROSIS
     Dosage: 20 UG, QD
     Dates: start: 20120212
  3. FORTEO [Suspect]
     Dosage: 20 UG, QD
  4. LUTEIN [Concomitant]
     Indication: MACULAR DEGENERATION
  5. CENTRUM                            /00554501/ [Concomitant]
     Indication: MACULAR DEGENERATION
  6. ESTER-C [Concomitant]
     Dosage: 500 ML, UNK
  7. ASPIRIN [Concomitant]
     Dosage: 81 UG, QD
  8. ZEAXANTHIN [Concomitant]
     Indication: MACULAR DEGENERATION
     Dosage: UNK, QD
  9. CITRICAL [Concomitant]
  10. VITAMIN D [Concomitant]
     Dosage: 2000 IU, QD

REACTIONS (7)
  - CEREBROVASCULAR ACCIDENT [None]
  - DYSKINESIA [None]
  - URINARY TRACT INFECTION [None]
  - BLOOD PRESSURE DECREASED [None]
  - HEART RATE INCREASED [None]
  - HEART RATE IRREGULAR [None]
  - BLOOD PRESSURE INCREASED [None]
